FAERS Safety Report 9404649 (Version 1)
Quarter: 2013Q3

REPORT INFORMATION
  Report Type: Spontaneous
  Country: US (occurrence: None)
  Receive Date: 20130705
  Receipt Date: 20130705
  Transmission Date: 20140515
  Serious: Yes (Hospitalization)
  Sender: FDA-Public Use
  Company Number: 2013PROUSA02892

PATIENT
  Age: 62 Year
  Sex: Male

DRUGS (1)
  1. PROVENGE [Suspect]
     Indication: PROSTATE CANCER METASTATIC
     Dosage: 250 ML, SINGLE, INTRAVNOUS
     Route: 042
     Dates: start: 20130520, end: 20130520

REACTIONS (4)
  - Abdominal pain [None]
  - Dehydration [None]
  - Vomiting [None]
  - Malaise [None]
